FAERS Safety Report 5692598-0 (Version None)
Quarter: 2008Q2

REPORT INFORMATION
  Report Type: 
  Country: None (occurrence: None)
  Receive Date: 20080402
  Receipt Date: 20080327
  Transmission Date: 20081010
  Serious: Yes (Other)
  Sender: FDA-Public Use
  Company Number: US-BOEHRINGER INGELHEIM GMBH, GERMANY-2008-BP-04752BP

PATIENT

DRUGS (2)
  1. VIRAMUNE [Suspect]
     Route: 015
  2. COMBIVIR [Suspect]
     Route: 015

REACTIONS (3)
  - DRUG EXPOSURE DURING PREGNANCY [None]
  - HEART DISEASE CONGENITAL [None]
  - ULTRASOUND ANTENATAL SCREEN ABNORMAL [None]
